FAERS Safety Report 7105535-9 (Version None)
Quarter: 2010Q4

REPORT INFORMATION
  Report Type: 
  Country: None (occurrence: None)
  Receive Date: 20101116
  Receipt Date: 20101108
  Transmission Date: 20110411
  Serious: Yes (Other)
  Sender: FDA-Public Use
  Company Number: AU-ROCHE-739683

PATIENT
  Sex: Female

DRUGS (1)
  1. XELODA [Suspect]
     Route: 065

REACTIONS (4)
  - FEELING ABNORMAL [None]
  - FLUID RETENTION [None]
  - OEDEMA PERIPHERAL [None]
  - SKIN EXFOLIATION [None]
